FAERS Safety Report 9311173 (Version 6)
Quarter: 2014Q1

REPORT INFORMATION
  Report Type: Spontaneous
  Country: US (occurrence: US)
  Receive Date: 20130528
  Receipt Date: 20140314
  Transmission Date: 20141002
  Serious: No
  Sender: FDA-Public Use
  Company Number: US-PFIZER INC-2013161356

PATIENT
  Age: 71 Year
  Sex: Male
  Weight: 112 kg

DRUGS (9)
  1. LYRICA [Suspect]
     Indication: NEURALGIA
     Dosage: 150 MG, 3X/DAY
     Route: 048
     Dates: start: 20130612
  2. CALCIUM/MINERALS/VITAMIN D [Concomitant]
     Dosage: 600-200 MG-UNIT TABS DAILY
     Dates: start: 20120925
  3. DILTIAZEM [Concomitant]
     Dosage: 360 MG 24HR CAPSULE, ORAL 360 MG DAILY
     Route: 048
     Dates: start: 20120425
  4. OMEPRAZOLE [Concomitant]
     Dosage: 20 MG DAILY
     Route: 048
     Dates: start: 20120425
  5. PRAVASTATIN [Concomitant]
     Dosage: 20 MG TABLET, ORAL ONE TABLET DAILY IN THE EVENING
     Route: 048
     Dates: start: 20130725
  6. TRIAMTERENE AND HYDROCHLOROTHIAZID ^HARRIS^ [Concomitant]
     Dosage: 37.5-25 MG PER TABLET, ORAL 1 TABLET DAILY
     Route: 048
     Dates: start: 20130726
  7. TESTOSTERONE 1.5% GEL OR CREAM COMPOUNDED [Concomitant]
     Indication: BLOOD TESTOSTERONE DECREASED
     Dosage: APPLY 40MG TOPICALLY Q AM
     Dates: start: 20130726
  8. TESTOSTERONE 1.5% GEL OR CREAM COMPOUNDED [Concomitant]
     Indication: HYPOGONADISM MALE
  9. WARFARIN [Concomitant]
     Dosage: 5MG TABLET, AT ONE HALF TO ONE TABLET DAILY AS DIRECTED
     Dates: start: 20130411

REACTIONS (7)
  - Malaise [Unknown]
  - Pain [Unknown]
  - Asthenia [Unknown]
  - Fatigue [Unknown]
  - Hypoaesthesia [Unknown]
  - Drug effect incomplete [Unknown]
  - Urinary incontinence [Unknown]
